FAERS Safety Report 9391599 (Version 2)
Quarter: 2013Q3

REPORT INFORMATION
  Report Type: Spontaneous
  Country: US (occurrence: US)
  Receive Date: 20130709
  Receipt Date: 20130821
  Transmission Date: 20140515
  Serious: Yes (Other)
  Sender: FDA-Public Use
  Company Number: US-PFIZER INC-2013201693

PATIENT
  Age: 56 Year
  Sex: Female
  Weight: 86.17 kg

DRUGS (6)
  1. LYRICA [Suspect]
     Indication: DIABETIC NEUROPATHY
     Dosage: 150 MG, 2X/DAY
     Route: 048
  2. AMBIEN [Concomitant]
     Dosage: UNK
  3. SEROQUEL [Concomitant]
     Dosage: UNK
  4. PRISTIQ [Concomitant]
     Dosage: UNK
  5. XANAX [Concomitant]
     Dosage: UNK
  6. BUSPIRONE [Concomitant]
     Dosage: UNK

REACTIONS (1)
  - Ankle fracture [Unknown]
